FAERS Safety Report 23822316 (Version 1)
Quarter: 2024Q2

REPORT INFORMATION
  Report Type: Spontaneous
  Country: US (occurrence: None)
  Receive Date: 20240504
  Receipt Date: 20240504
  Transmission Date: 20240716
  Serious: No
  Sender: FDA-Public Use
  Company Number: None

PATIENT
  Age: 61 Year
  Sex: Male
  Weight: 92.8 kg

DRUGS (1)
  1. ALIMTA [Suspect]
     Active Substance: PEMETREXED DISODIUM
     Indication: Product used for unknown indication
     Dates: end: 20240424

REACTIONS (6)
  - Dyspnoea [None]
  - Chest pain [None]
  - Pleurisy [None]
  - Blood glucose increased [None]
  - Haemoglobin decreased [None]
  - Lung disorder [None]

NARRATIVE: CASE EVENT DATE: 20240428
